FAERS Safety Report 15696428 (Version 1)
Quarter: 2018Q4

REPORT INFORMATION
  Report Type: Spontaneous
  Country: CH (occurrence: CH)
  Receive Date: 20181206
  Receipt Date: 20181206
  Transmission Date: 20190205
  Serious: Yes (Other)
  Sender: FDA-Public Use
  Company Number: PHHY2018CH172325

PATIENT

DRUGS (1)
  1. IBUPROFEN. [Suspect]
     Active Substance: IBUPROFEN
     Indication: MIGRAINE
     Dosage: 400 MG, UNK
     Route: 065

REACTIONS (8)
  - Fatigue [Unknown]
  - Drug abuse [Unknown]
  - Panic attack [Recovering/Resolving]
  - Swelling face [Recovered/Resolved]
  - Nausea [Recovered/Resolved]
  - Headache [Recovering/Resolving]
  - Hallucination [Recovering/Resolving]
  - Wrong technique in product usage process [Unknown]
